FAERS Safety Report 4350469-6 (Version None)
Quarter: 2004Q2

REPORT INFORMATION
  Report Type: 
  Country: None (occurrence: None)
  Receive Date: 20040430
  Receipt Date: 20040323
  Transmission Date: 20050107
  Serious: Yes (Other)
  Sender: FDA-Public Use
  Company Number: PHBS2004NL03989

PATIENT
  Age: 84 Year
  Sex: Male

DRUGS (5)
  1. NEORAL [Suspect]
     Indication: PRURITUS
     Dosage: 450 MG/D
     Route: 048
     Dates: start: 20031021
  2. METHOTREXATE [Concomitant]
  3. SELOKEEN [Concomitant]
  4. UREUMZALF CREAM [Concomitant]
  5. FOLIC ACID [Concomitant]

REACTIONS (4)
  - CONFUSIONAL STATE [None]
  - DIZZINESS [None]
  - HALLUCINATION [None]
  - VISION BLURRED [None]
